FAERS Safety Report 12349830 (Version 1)
Quarter: 2016Q2

REPORT INFORMATION
  Report Type: Spontaneous
  Country: US (occurrence: US)
  Receive Date: 20160510
  Receipt Date: 20160510
  Transmission Date: 20160815
  Serious: No
  Sender: FDA-Public Use
  Company Number: PHHY2016US063882

PATIENT
  Age: 83 Year
  Sex: Female

DRUGS (4)
  1. VOLTAREN [Suspect]
     Active Substance: DICLOFENAC SODIUM
     Indication: RIB FRACTURE
  2. VOLTAREN [Suspect]
     Active Substance: DICLOFENAC SODIUM
     Indication: PAIN
  3. COUMADINE [Concomitant]
     Active Substance: WARFARIN SODIUM
     Indication: PRODUCT USED FOR UNKNOWN INDICATION
     Dosage: UNK
     Route: 065
     Dates: start: 2006
  4. VOLTAREN [Suspect]
     Active Substance: DICLOFENAC SODIUM
     Indication: COSTOCHONDRITIS
     Dosage: UNK
     Route: 065
     Dates: start: 201511, end: 20160422

REACTIONS (4)
  - Rib fracture [Not Recovered/Not Resolved]
  - Drug prescribing error [Unknown]
  - Fall [Not Recovered/Not Resolved]
  - Drug ineffective for unapproved indication [Unknown]

NARRATIVE: CASE EVENT DATE: 20160415
